FAERS Safety Report 7966008-4 (Version None)
Quarter: 2011Q4

REPORT INFORMATION
  Report Type: 
  Country: None (occurrence: None)
  Receive Date: 20111208
  Receipt Date: 20111130
  Transmission Date: 20120403
  Serious: Yes (Other)
  Sender: FDA-Public Use
  Company Number: DE-JNJFOC-20111203071

PATIENT

DRUGS (3)
  1. HALOPERIDOL [Suspect]
     Dosage: THIRD TO SEVENTH DAY 3 MG
     Route: 048
  2. HALOPERIDOL [Suspect]
     Dosage: FIRST DAY 1 MG
     Route: 048
  3. HALOPERIDOL [Suspect]
     Indication: PRODUCT USED FOR UNKNOWN INDICATION
     Dosage: SECOND DAY 2 MG
     Route: 048

REACTIONS (1)
  - OBSESSIVE-COMPULSIVE DISORDER [None]
